FAERS Safety Report 5986527-X (Version None)
Quarter: 2008Q4

REPORT INFORMATION
  Report Type: 
  Country: None (occurrence: None)
  Receive Date: 20081203
  Receipt Date: 20081121
  Transmission Date: 20090506
  Serious: Yes (Congenital Anomaly)
  Sender: FDA-Public Use
  Company Number: 2008-172945-NL

PATIENT
  Sex: 0

DRUGS (2)
  1. MIRTAZAPINE [Suspect]
     Indication: DEPRESSION
     Dosage: DF TRANSPLACENTAL
     Route: 064
     Dates: start: 20071013
  2. MIRTAZAPINE [Suspect]
     Indication: SLEEP DISORDER
     Dosage: DF TRANSPLACENTAL
     Route: 064
     Dates: start: 20071013

REACTIONS (5)
  - ASCITES [None]
  - DRUG EXPOSURE DURING PREGNANCY [None]
  - HYDROPS FOETALIS [None]
  - INSOMNIA [None]
  - PLEURAL EFFUSION [None]
